FAERS Safety Report 18094375 (Version 1)
Quarter: 2020Q3

REPORT INFORMATION
  Report Type: Report from Study
  Country: JP (occurrence: JP)
  Receive Date: 20200730
  Receipt Date: 20200730
  Transmission Date: 20201103
  Serious: Yes (Other)
  Sender: FDA-Public Use
  Company Number: JP-SECURA BIO, INC.-2016JP016999

PATIENT

DRUGS (51)
  1. FARYDAK [Suspect]
     Active Substance: PANOBINOSTAT
     Dosage: 15 MG, QD
     Route: 048
     Dates: start: 20151125
  2. FARYDAK [Suspect]
     Active Substance: PANOBINOSTAT
     Dosage: 20 MG, QD
     Route: 048
     Dates: start: 20160511
  3. BORTEZOMIB. [Suspect]
     Active Substance: BORTEZOMIB
     Dosage: 1.3 MG/M2, 1/WEEK
     Route: 058
     Dates: start: 20160330
  4. BORTEZOMIB. [Suspect]
     Active Substance: BORTEZOMIB
     Dosage: 1.3 MG/M2, 1/WEEK
     Route: 058
     Dates: start: 20160601
  5. BORTEZOMIB. [Suspect]
     Active Substance: BORTEZOMIB
     Dosage: 1.3 MG/M2, 1/WEEK
     Route: 058
     Dates: start: 20160622
  6. BORTEZOMIB. [Suspect]
     Active Substance: BORTEZOMIB
     Dosage: 1.3 MG/M2, 1/WEEK
     Route: 058
     Dates: start: 20160824
  7. LENADEX [Suspect]
     Active Substance: DEXAMETHASONE ACETATE
     Indication: PLASMA CELL MYELOMA
     Dosage: UNK
     Dates: start: 20151104
  8. LENADEX [Suspect]
     Active Substance: DEXAMETHASONE ACETATE
     Dosage: UNK
     Dates: start: 20160127
  9. FARYDAK [Suspect]
     Active Substance: PANOBINOSTAT
     Dosage: 15 MG, QD
     Route: 048
     Dates: start: 20151216
  10. FARYDAK [Suspect]
     Active Substance: PANOBINOSTAT
     Dosage: 20 MG, QD
     Route: 048
     Dates: start: 20160622
  11. LENADEX [Suspect]
     Active Substance: DEXAMETHASONE ACETATE
     Dosage: UNK
     Dates: start: 20160330
  12. FARYDAK [Suspect]
     Active Substance: PANOBINOSTAT
     Dosage: 20 MG, QD
     Route: 048
     Dates: start: 20160330
  13. LENADEX [Suspect]
     Active Substance: DEXAMETHASONE ACETATE
     Dosage: UNK
     Dates: start: 20160914, end: 20161004
  14. BAYASPIRIN [Concomitant]
     Active Substance: ASPIRIN
     Indication: PRODUCT USED FOR UNKNOWN INDICATION
     Dosage: 100 MG, QD
     Route: 048
  15. ACICLOVIR [Concomitant]
     Active Substance: ACYCLOVIR
     Indication: PRODUCT USED FOR UNKNOWN INDICATION
     Dosage: 200 MG, QD
     Route: 048
     Dates: start: 20151125
  16. FARYDAK [Suspect]
     Active Substance: PANOBINOSTAT
     Dosage: 20 MG, QD
     Route: 048
     Dates: start: 20160713
  17. BORTEZOMIB. [Suspect]
     Active Substance: BORTEZOMIB
     Dosage: 1.3 MG/M2, 1/WEEK
     Route: 058
     Dates: start: 20151216
  18. BORTEZOMIB. [Suspect]
     Active Substance: BORTEZOMIB
     Dosage: 1.3 MG/M2, 1/WEEK
     Route: 058
     Dates: start: 20160127
  19. LENADEX [Suspect]
     Active Substance: DEXAMETHASONE ACETATE
     Dosage: UNK
     Dates: start: 20160622
  20. LENADEX [Suspect]
     Active Substance: DEXAMETHASONE ACETATE
     Dosage: UNK
     Dates: start: 20160713
  21. LENADEX [Suspect]
     Active Substance: DEXAMETHASONE ACETATE
     Dosage: UNK
     Dates: start: 20160803
  22. NEXIUM CONTROL [Concomitant]
     Active Substance: ESOMEPRAZOLE MAGNESIUM
     Indication: PRODUCT USED FOR UNKNOWN INDICATION
     Dosage: 20 MG, QD
     Route: 048
  23. FARYDAK [Suspect]
     Active Substance: PANOBINOSTAT
     Dosage: 15 MG, QD
     Route: 048
     Dates: start: 20160106
  24. FARYDAK [Suspect]
     Active Substance: PANOBINOSTAT
     Dosage: 15 MG, QD
     Route: 048
     Dates: start: 20160127
  25. FARYDAK [Suspect]
     Active Substance: PANOBINOSTAT
     Dosage: 20 MG, QD
     Route: 048
     Dates: start: 20160217
  26. FARYDAK [Suspect]
     Active Substance: PANOBINOSTAT
     Dosage: 20 MG, QD
     Route: 048
     Dates: start: 20160309
  27. BORTEZOMIB. [Suspect]
     Active Substance: BORTEZOMIB
     Indication: PLASMA CELL MYELOMA
     Dosage: 1.3 MG/M2, 1/WEEK
     Route: 058
     Dates: start: 20151104
  28. BORTEZOMIB. [Suspect]
     Active Substance: BORTEZOMIB
     Dosage: 1.3 MG/M2, 1/WEEK
     Route: 058
     Dates: start: 20160309
  29. BORTEZOMIB. [Suspect]
     Active Substance: BORTEZOMIB
     Dosage: 1.3 MG/M2, 1/WEEK
     Route: 058
     Dates: start: 20160713
  30. BORTEZOMIB. [Suspect]
     Active Substance: BORTEZOMIB
     Dosage: 1.3 MG/M2, 1/WEEK
     Route: 058
     Dates: start: 20160914, end: 20161004
  31. LENADEX [Suspect]
     Active Substance: DEXAMETHASONE ACETATE
     Dosage: UNK
     Dates: start: 20160309
  32. FARYDAK [Suspect]
     Active Substance: PANOBINOSTAT
     Indication: PLASMA CELL MYELOMA
     Dosage: 10 MG, QD
     Route: 048
     Dates: start: 20151104, end: 20151125
  33. FARYDAK [Suspect]
     Active Substance: PANOBINOSTAT
     Dosage: 20 MG, QD
     Route: 048
     Dates: start: 20160420
  34. BORTEZOMIB. [Suspect]
     Active Substance: BORTEZOMIB
     Dosage: 1.3 MG/M2, 1/WEEK
     Route: 058
     Dates: start: 20160106
  35. LENADEX [Suspect]
     Active Substance: DEXAMETHASONE ACETATE
     Dosage: UNK
     Dates: start: 20151125, end: 20151216
  36. LENADEX [Suspect]
     Active Substance: DEXAMETHASONE ACETATE
     Dosage: UNK
     Dates: start: 20160106
  37. LENADEX [Suspect]
     Active Substance: DEXAMETHASONE ACETATE
     Dosage: UNK
     Dates: start: 20160824
  38. AMLODIPINE (ALS BESILAAT) SANDOZ [Concomitant]
     Indication: HYPERTENSION
     Dosage: 5 MG, QD
     Route: 048
  39. FARYDAK [Suspect]
     Active Substance: PANOBINOSTAT
     Dosage: 20 MG, QD
     Route: 048
     Dates: start: 20160601
  40. FARYDAK [Suspect]
     Active Substance: PANOBINOSTAT
     Dosage: 20 MG, QD
     Route: 048
     Dates: start: 20160803
  41. BORTEZOMIB. [Suspect]
     Active Substance: BORTEZOMIB
     Dosage: 1.3 MG/M2, 1/WEEK
     Route: 058
     Dates: start: 20151125
  42. BORTEZOMIB. [Suspect]
     Active Substance: BORTEZOMIB
     Dosage: 1.3 MG/M2, 1/WEEK
     Route: 058
     Dates: start: 20160217
  43. BORTEZOMIB. [Suspect]
     Active Substance: BORTEZOMIB
     Dosage: 1.3 MG/M2, 1/WEEK
     Route: 058
     Dates: start: 20160511
  44. LENADEX [Suspect]
     Active Substance: DEXAMETHASONE ACETATE
     Dosage: UNK
     Dates: start: 20151216, end: 20151216
  45. LENADEX [Suspect]
     Active Substance: DEXAMETHASONE ACETATE
     Dosage: UNK
     Dates: start: 20160420
  46. LENADEX [Suspect]
     Active Substance: DEXAMETHASONE ACETATE
     Dosage: UNK
     Dates: start: 20160511
  47. FARYDAK [Suspect]
     Active Substance: PANOBINOSTAT
     Dosage: 20 MG, QD
     Route: 048
     Dates: start: 20160914, end: 20161004
  48. BORTEZOMIB. [Suspect]
     Active Substance: BORTEZOMIB
     Dosage: 1.3 MG/M2, 1/WEEK
     Route: 058
     Dates: start: 20160420
  49. BORTEZOMIB. [Suspect]
     Active Substance: BORTEZOMIB
     Dosage: 1.3 MG/M2, 1/WEEK
     Route: 058
     Dates: start: 20160803
  50. LENADEX [Suspect]
     Active Substance: DEXAMETHASONE ACETATE
     Dosage: UNK
     Dates: start: 20160217
  51. LENADEX [Suspect]
     Active Substance: DEXAMETHASONE ACETATE
     Dosage: UNK
     Dates: start: 20160601

REACTIONS (30)
  - Diarrhoea [Recovered/Resolved]
  - Diarrhoea [Recovered/Resolved]
  - Diarrhoea [Recovered/Resolved]
  - Diarrhoea [Recovered/Resolved]
  - Diarrhoea [Recovered/Resolved]
  - Platelet count decreased [Recovered/Resolved]
  - Diarrhoea [Recovered/Resolved]
  - Diarrhoea [Recovered/Resolved]
  - Neutropenia [Recovered/Resolved]
  - Platelet count decreased [Recovered/Resolved]
  - White blood cell count decreased [Unknown]
  - Vision blurred [Recovered/Resolved]
  - Diarrhoea [Recovered/Resolved]
  - Haemoglobin decreased [Unknown]
  - Neutropenia [Recovered/Resolved]
  - Alanine aminotransferase increased [Recovering/Resolving]
  - Diarrhoea [Recovered/Resolved]
  - Neutropenia [Recovered/Resolved]
  - Diarrhoea [Recovered/Resolved]
  - Diarrhoea [Recovered/Resolved]
  - Diarrhoea [Recovered/Resolved]
  - Neutropenia [Recovered/Resolved]
  - Oedema peripheral [Recovering/Resolving]
  - Bone marrow failure [Unknown]
  - Cataract [Recovered/Resolved]
  - Diarrhoea [Recovered/Resolved]
  - Neutropenia [Recovered/Resolved]
  - Platelet count decreased [Recovered/Resolved]
  - Neutropenia [Recovered/Resolved]
  - Platelet count decreased [Recovered/Resolved]

NARRATIVE: CASE EVENT DATE: 20151109
